FAERS Safety Report 6188014-5 (Version None)
Quarter: 2009Q2

REPORT INFORMATION
  Report Type: 
  Country: None (occurrence: None)
  Receive Date: 20090511
  Receipt Date: 20090511
  Transmission Date: 20091009
  Serious: Yes (Other)
  Sender: FDA-Public Use
  Company Number: None

PATIENT
  Age: 55 Year
  Sex: Female
  Weight: 58.9676 kg

DRUGS (1)
  1. METOCLOPRAMIDE [Suspect]
     Indication: OESOPHAGEAL SPASM
     Dosage: 1/2 TABLET FOUR TIMES A DAY PO
     Route: 048
     Dates: start: 20090402, end: 20090405

REACTIONS (9)
  - ANXIETY [None]
  - FATIGUE [None]
  - FEELING ABNORMAL [None]
  - MOVEMENT DISORDER [None]
  - MUSCULOSKELETAL STIFFNESS [None]
  - NECK PAIN [None]
  - NERVOUSNESS [None]
  - TONGUE DISORDER [None]
  - TREMOR [None]
